FAERS Safety Report 19679837 (Version 1)
Quarter: 2021Q3

REPORT INFORMATION
  Report Type: Spontaneous
  Country: CN (occurrence: CN)
  Receive Date: 20210809
  Receipt Date: 20210809
  Transmission Date: 20211014
  Serious: Yes (Other)
  Sender: FDA-Public Use
  Company Number: CN-BAXTER-2021BAX023854

PATIENT
  Age: 19 Year
  Sex: Male
  Weight: 68.5 kg

DRUGS (12)
  1. ENDOXAN [Suspect]
     Active Substance: CYCLOPHOSPHAMIDE
     Indication: ACUTE LYMPHOCYTIC LEUKAEMIA
     Dosage: CYCLOPHOSPHAMIDE FOR INJECTION 1300 MG + 0.9% SODIUM CHLORIDE INJECTION 500 ML IVGTT ONCE
     Route: 041
     Dates: start: 20210623, end: 20210708
  2. 0.9% SODIUM CHLORIDE INJECTION [Suspect]
     Active Substance: SODIUM CHLORIDE
     Indication: MEDICATION DILUTION
     Dosage: 0.9% SODIUM CHLORIDE INJECTION 50 ML + VINCRISTINE SULFATE FOR INJECTION 2 MG IV Q7D
     Route: 042
     Dates: start: 20210623, end: 20210715
  3. 0.9% SODIUM CHLORIDE INJECTION [Suspect]
     Active Substance: SODIUM CHLORIDE
     Dosage: DOSE REINTRODUCED; CYCLOPHOSPHAMIDE FOR INJECTION + 0.9% SODIUM CHLORIDE INJECTION IVGTT ONCE
     Route: 041
  4. ENDOXAN [Suspect]
     Active Substance: CYCLOPHOSPHAMIDE
     Dosage: DOSE REINTRODUCED; CYCLOPHOSPHAMIDE INJECTION + 0.9% SODIUM CHLORIDE INJECTION IVGTT ONCE
     Route: 041
  5. 0.9% SODIUM CHLORIDE INJECTION [Suspect]
     Active Substance: SODIUM CHLORIDE
     Dosage: DOSE REINTRODUCED; DAUNORUBICIN HYDROCHLORIDE INJECTION + 0.9% SODIUM CHLORIDE INJECTION IVGTT QD
     Route: 041
  6. VINCRISTINE SULFATE. [Suspect]
     Active Substance: VINCRISTINE SULFATE
     Dosage: DOSE REINTRODUCED; 0.9% SODIUM CHLORIDE INJECTION + VINCRISTINE SULFATE FOR INJECTION IV Q7D
     Route: 042
  7. DAUNORUBICIN HYDROCHLORIDE. [Suspect]
     Active Substance: DAUNORUBICIN HYDROCHLORIDE
     Dosage: DOSE REINTRODUCED; DAUNORUBICIN HYDROCHLORIDE INJECTION + 0.9% SODIUM CHLORIDE INJECTION IVGTT QD
     Route: 041
  8. 0.9% SODIUM CHLORIDE INJECTION [Suspect]
     Active Substance: SODIUM CHLORIDE
     Dosage: CYCLOPHOSPHAMIDE FOR INJECTION 1300 MG + 0.9% SODIUM CHLORIDE INJECTION 500 ML IVGTT ONCE
     Route: 041
     Dates: start: 20210623, end: 20210708
  9. 0.9% SODIUM CHLORIDE INJECTION [Suspect]
     Active Substance: SODIUM CHLORIDE
     Dosage: DOSE REINTRODUCED; 0.9% SODIUM CHLORIDE INJECTION + VINCRISTINE SULFATE FOR INJECTION IV Q7D
     Route: 042
  10. 0.9% SODIUM CHLORIDE INJECTION [Suspect]
     Active Substance: SODIUM CHLORIDE
     Dosage: DAUNORUBICIN HYDROCHLORIDE FOR INJECTION 80 MG + 0.9% SODIUM CHLORIDE INJECTION 250 ML IVGTT QD
     Route: 041
     Dates: start: 20210623, end: 20210708
  11. DAUNORUBICIN HYDROCHLORIDE. [Suspect]
     Active Substance: DAUNORUBICIN HYDROCHLORIDE
     Indication: ACUTE LYMPHOCYTIC LEUKAEMIA
     Dosage: DAUNORUBICIN HYDROCHLORIDE FOR INJECTION 80 MG + 0.9% SODIUM CHLORIDE INJECTION 250 ML IVGTT QD
     Route: 041
     Dates: start: 20210623, end: 20210625
  12. VINCRISTINE SULFATE. [Suspect]
     Active Substance: VINCRISTINE SULFATE
     Indication: ACUTE LYMPHOCYTIC LEUKAEMIA
     Dosage: 0.9% SODIUM CHLORIDE INJECTION 50 ML + VINCRISTINE SULFATE FOR INJECTION 2 MG IV Q7D
     Route: 042
     Dates: start: 20210623, end: 20210715

REACTIONS (1)
  - Myelosuppression [Recovering/Resolving]

NARRATIVE: CASE EVENT DATE: 20210726
